FAERS Safety Report 20850924 (Version 1)
Quarter: 2022Q2

REPORT INFORMATION
  Report Type: Spontaneous
  Country: BR (occurrence: BR)
  Receive Date: 20220519
  Receipt Date: 20220519
  Transmission Date: 20220720
  Serious: Yes (Other)
  Sender: FDA-Public Use
  Company Number: BR-PFIZER INC-202200448139

PATIENT
  Age: 16 Year
  Sex: Male

DRUGS (4)
  1. BESPONSA [Suspect]
     Active Substance: INOTUZUMAB OZOGAMICIN
     Indication: Acute lymphocytic leukaemia
     Dosage: 1.3 MG/M2
  2. CYCLOPHOSPHAMIDE [Suspect]
     Active Substance: CYCLOPHOSPHAMIDE
     Indication: Acute lymphocytic leukaemia
     Dosage: UNK
  3. VINCRISTINE [Suspect]
     Active Substance: VINCRISTINE
     Indication: Acute lymphocytic leukaemia
     Dosage: UNK
  4. DEXAMETHASONE [Suspect]
     Active Substance: DEXAMETHASONE
     Indication: Acute lymphocytic leukaemia
     Dosage: UNK

REACTIONS (10)
  - Venoocclusive liver disease [Unknown]
  - Infection [Unknown]
  - Anuria [Unknown]
  - Serum ferritin increased [Unknown]
  - General physical health deterioration [Unknown]
  - Pyrexia [Unknown]
  - Spleen disorder [Unknown]
  - Hepatic mass [Unknown]
  - Renal disorder [Unknown]
  - Off label use [Unknown]
